FAERS Safety Report 19313099 (Version 1)
Quarter: 2021Q2

REPORT INFORMATION
  Report Type: Spontaneous
  Country: US (occurrence: US)
  Receive Date: 20210526
  Receipt Date: 20210526
  Transmission Date: 20210717
  Serious: Yes (Death)
  Sender: FDA-Public Use
  Company Number: None

PATIENT
  Age: 79 Year
  Sex: Male

DRUGS (3)
  1. DRONABINOL 5MG [Concomitant]
     Active Substance: DRONABINOL
     Dates: start: 20210329, end: 20210526
  2. PREDNISONE 20MG [Concomitant]
     Active Substance: PREDNISONE
     Dates: start: 20210329, end: 20210526
  3. MATULANE [Suspect]
     Active Substance: PROCARBAZINE HYDROCHLORIDE
     Indication: HODGKIN^S DISEASE
     Route: 048
     Dates: start: 20210329, end: 20210526

REACTIONS (2)
  - Disease complication [None]
  - Cardiac disorder [None]

NARRATIVE: CASE EVENT DATE: 20210526
